FAERS Safety Report 9979489 (Version 1)
Quarter: 2014Q1

REPORT INFORMATION
  Report Type: Report from Study
  Country: US (occurrence: US)
  Receive Date: 20140306
  Receipt Date: 20140306
  Transmission Date: 20141002
  Serious: No
  Sender: FDA-Public Use
  Company Number: US-ABBVIE-13P-163-1170771-00

PATIENT
  Sex: Male

DRUGS (4)
  1. HUMIRA [Suspect]
     Indication: PSORIASIS
     Dates: start: 201301
  2. GABAPENTIN [Concomitant]
     Indication: ANXIETY
  3. MARIJUANA [Concomitant]
     Indication: PAIN
  4. MARIJUANA [Concomitant]
     Indication: ANXIETY

REACTIONS (7)
  - Pain [Not Recovered/Not Resolved]
  - Thermal burn [Not Recovered/Not Resolved]
  - Drug dependence [Not Recovered/Not Resolved]
  - Impaired healing [Not Recovered/Not Resolved]
  - Lower respiratory tract infection [Recovered/Resolved]
  - Stress [Not Recovered/Not Resolved]
  - Psoriasis [Not Recovered/Not Resolved]
